FAERS Safety Report 11703432 (Version 1)
Quarter: 2015Q4

REPORT INFORMATION
  Report Type: Spontaneous
  Country: US (occurrence: US)
  Receive Date: 20151105
  Receipt Date: 20151105
  Transmission Date: 20160304
  Serious: No
  Sender: FDA-Public Use
  Company Number: US-ANACOR-2015ANA00097

PATIENT
  Age: 80 Year
  Sex: Male
  Weight: 90.25 kg

DRUGS (1)
  1. KERYDIN [Suspect]
     Active Substance: TAVABOROLE
     Indication: ONYCHOMYCOSIS
     Dosage: 1-2 GTT, 1X/DAY
     Route: 061
     Dates: start: 20150708, end: 201507

REACTIONS (3)
  - Application site pain [Recovering/Resolving]
  - Application site pruritus [Recovering/Resolving]
  - Application site paraesthesia [Recovering/Resolving]

NARRATIVE: CASE EVENT DATE: 201507
